FAERS Safety Report 8780945 (Version 2)
Quarter: 2013Q4

REPORT INFORMATION
  Report Type: Spontaneous
  Country: US (occurrence: US)
  Receive Date: 20120913
  Receipt Date: 20131031
  Transmission Date: 20140711
  Serious: Yes (Other)
  Sender: FDA-Public Use
  Company Number: US-009507513-1209USA003695

PATIENT
  Age: 33 Year
  Sex: Female

DRUGS (5)
  1. ISENTRESS [Suspect]
     Route: 048
  2. ESCITALOPRAM OXALATE [Suspect]
     Route: 048
  3. TRUVADA [Suspect]
     Route: 048
  4. TERCIAN [Suspect]
     Route: 048
  5. IRBESARTAN [Concomitant]
     Route: 048

REACTIONS (4)
  - Biliary dilatation [Unknown]
  - Amylase increased [Unknown]
  - Lipase increased [Unknown]
  - Abdominal pain [Unknown]
